FAERS Safety Report 25614613 (Version 1)
Quarter: 2025Q3

REPORT INFORMATION
  Report Type: Spontaneous
  Country: US (occurrence: US)
  Receive Date: 20250729
  Receipt Date: 20250729
  Transmission Date: 20251021
  Serious: Yes (Hospitalization)
  Sender: CHEPLAPHARM
  Company Number: US-CHEPLA-2025008986

PATIENT
  Age: 80 Year
  Sex: Female

DRUGS (22)
  1. VALGANCICLOVIR [Suspect]
     Active Substance: VALGANCICLOVIR
     Indication: Renal failure
     Route: 048
  2. VALGANCICLOVIR [Suspect]
     Active Substance: VALGANCICLOVIR
     Indication: Cytomegalovirus chorioretinitis
     Route: 048
  3. GANCICLOVIR [Suspect]
     Active Substance: GANCICLOVIR
     Indication: Renal failure
     Route: 042
  4. FOSCARNET [Suspect]
     Active Substance: FOSCARNET
  5. ENTECAVIR [Concomitant]
     Active Substance: ENTECAVIR
     Indication: Chronic hepatitis B
  6. CLARITHROMYCIN [Concomitant]
     Active Substance: CLARITHROMYCIN
     Indication: Plasma cell myeloma
     Dates: start: 200704, end: 201512
  7. BIAXIN [Concomitant]
     Active Substance: CLARITHROMYCIN
     Indication: Plasma cell myeloma
     Dates: start: 200704, end: 201512
  8. REVLIMID [Concomitant]
     Active Substance: LENALIDOMIDE
     Indication: Plasma cell myeloma
     Dates: start: 200704, end: 201512
  9. DEXAMETHASONE [Concomitant]
     Active Substance: DEXAMETHASONE
     Indication: Plasma cell myeloma
     Dates: start: 200704, end: 201512
  10. DEXAMETHASONE [Concomitant]
     Active Substance: DEXAMETHASONE
     Indication: Plasma cell myeloma
     Dates: start: 201808
  11. DEXAMETHASONE [Concomitant]
     Active Substance: DEXAMETHASONE
     Indication: Plasma cell myeloma
     Dates: end: 201603
  12. CARFILZOMIB [Concomitant]
     Active Substance: CARFILZOMIB
     Dates: end: 201603
  13. POMALIDOMIDE [Concomitant]
     Active Substance: POMALIDOMIDE
     Dates: end: 201603
  14. TOLODODEKIN ALFA [Concomitant]
     Active Substance: TOLODODEKIN ALFA
  15. IXAZOMIB [Concomitant]
     Active Substance: IXAZOMIB
     Dates: end: 201711
  16. ToIxazomib [Concomitant]
     Dates: start: 201808
  17. VENETOCLAX [Concomitant]
     Active Substance: VENETOCLAX
     Dates: start: 201808
  18. HUMAN IMMUNOGLOBULIN G [Concomitant]
     Active Substance: HUMAN IMMUNOGLOBULIN G
     Indication: Hypogammaglobulinaemia
     Route: 042
  19. VENETOCLAX [Concomitant]
     Active Substance: VENETOCLAX
  20. ELRANATAMAB [Concomitant]
     Active Substance: ELRANATAMAB
  21. CIPROFLOXACIN [Concomitant]
     Active Substance: CIPROFLOXACIN
  22. TAMOXIFEN [Concomitant]
     Active Substance: TAMOXIFEN

REACTIONS (2)
  - Pneumonia bacterial [Unknown]
  - Coronavirus pneumonia [Unknown]
